FAERS Safety Report 9749998 (Version 2)
Quarter: 2014Q1

REPORT INFORMATION
  Report Type: Report from Study
  Country: US (occurrence: US)
  Receive Date: 20131212
  Receipt Date: 20140212
  Transmission Date: 20141002
  Serious: Yes (Other)
  Sender: FDA-Public Use
  Company Number: US-PURDUE-USA-2013-0109429

PATIENT
  Age: 62 Year
  Sex: Female
  Weight: 86.17 kg

DRUGS (2)
  1. OXY CR TAB [Suspect]
     Indication: NECK PAIN
     Dosage: 80 MG, UNK
     Route: 048
     Dates: start: 201202
  2. OXY CR TAB [Suspect]
     Indication: PAIN
     Dosage: 80 MG, SEE TEXT
     Route: 048
     Dates: start: 20130720, end: 201309

REACTIONS (2)
  - Meniscus injury [Unknown]
  - Pain [Unknown]
